FAERS Safety Report 7919770-0 (Version None)
Quarter: 2011Q4

REPORT INFORMATION
  Report Type: 
  Country: None (occurrence: None)
  Receive Date: 20111117
  Receipt Date: 20111107
  Transmission Date: 20120403
  Serious: Yes (Other)
  Sender: FDA-Public Use
  Company Number: US-JNJFOC-20111103996

PATIENT
  Sex: Female
  Weight: 81.19 kg

DRUGS (12)
  1. REQUIP [Concomitant]
     Indication: PERIODIC LIMB MOVEMENT DISORDER
     Route: 048
  2. VITAMIN D [Concomitant]
     Indication: VITAMIN D DEFICIENCY
     Route: 048
     Dates: start: 20110201
  3. PRISTIQ [Concomitant]
     Indication: DEPRESSION
     Route: 048
     Dates: start: 20080101
  4. FOLIC ACID [Concomitant]
     Indication: PSORIATIC ARTHROPATHY
     Route: 048
     Dates: start: 20110201
  5. NEURONTIN [Concomitant]
     Indication: MYALGIA
     Route: 048
  6. NEURONTIN [Concomitant]
     Indication: FIBROMYALGIA
     Route: 048
  7. DIVALPROEX SODIUM [Concomitant]
     Indication: MIGRAINE
     Route: 048
  8. PROTONIX [Concomitant]
     Indication: GASTROOESOPHAGEAL REFLUX DISEASE
     Route: 048
     Dates: start: 20040101
  9. REMICADE [Suspect]
     Indication: PSORIATIC ARTHROPATHY
     Route: 042
     Dates: start: 20110201
  10. METHOTREXATE [Concomitant]
     Indication: PSORIATIC ARTHROPATHY
     Route: 048
     Dates: start: 20110201
  11. RAMIPRIL [Concomitant]
     Indication: BLOOD PRESSURE
     Route: 048
  12. THYROID TAB [Concomitant]
     Indication: HYPOTHYROIDISM
     Route: 048
     Dates: start: 20010101

REACTIONS (3)
  - INFECTED CYST [None]
  - BRONCHITIS [None]
  - CYST [None]
